FAERS Safety Report 6026571-X (Version None)
Quarter: 2008Q4

REPORT INFORMATION
  Report Type: 
  Country: None (occurrence: None)
  Receive Date: 20081231
  Receipt Date: 20081217
  Transmission Date: 20090506
  Serious: Yes (Hospitalization)
  Sender: FDA-Public Use
  Company Number: KV200801240

PATIENT
  Age: 81 Year
  Sex: Female
  Weight: 79.4 kg

DRUGS (14)
  1. ISOSORBIDE MONONITRATE [Suspect]
     Indication: ANGINA PECTORIS
     Dosage: 60 MG, BID, ORAL
     Route: 048
  2. TOPROL-XL [Concomitant]
  3. CARDIZEM [Concomitant]
  4. HYZAAR /01284801/ (HYDROCHLOROTHIAZIDE, LOSARTAN POTASSIUM) [Concomitant]
  5. AMIODARONE HCL [Concomitant]
  6. PLAVIX [Concomitant]
  7. ASPIRIN [Concomitant]
  8. GLYBURIDE [Concomitant]
  9. PLETAL [Concomitant]
  10. ENALAPRIL MALEATE [Concomitant]
  11. CRESTOR [Concomitant]
  12. CALCIUM (CALCIUM) [Concomitant]
  13. ACTONEL [Concomitant]
  14. NITRO /00003201/ (GLYCERYL TRINITRATE) [Concomitant]

REACTIONS (7)
  - CARDIAC VALVE DISEASE [None]
  - CHEST PAIN [None]
  - DIALYSIS [None]
  - DYSPNOEA [None]
  - MYOCARDIAL INFARCTION [None]
  - PRODUCT QUALITY ISSUE [None]
  - RENAL FAILURE [None]
